FAERS Safety Report 5188900-9 (Version None)
Quarter: 2006Q4

REPORT INFORMATION
  Report Type: 
  Country: None (occurrence: None)
  Receive Date: 20061221
  Receipt Date: 20061123
  Transmission Date: 20070319
  Serious: Yes (Hospitalization)
  Sender: FDA-Public Use
  Company Number: FR-BOEHRINGER INGELHEIM GMBH, GERMANY-2006-FF-01303PF

PATIENT
  Sex: Male
  Weight: 68.5 kg

DRUGS (10)
  1. SPIRIVA [Suspect]
     Indication: BRONCHITIS CHRONIC
     Route: 055
  2. LASIX [Concomitant]
     Indication: ARRHYTHMIA
     Route: 048
  3. LASIX [Concomitant]
     Indication: CARDIAC VALVE DISEASE
  4. DIGOXIN [Concomitant]
     Indication: ARRHYTHMIA
  5. DIGOXIN [Concomitant]
     Indication: CARDIAC VALVE DISEASE
  6. RYTHMOL [Concomitant]
     Indication: ARRHYTHMIA
  7. RYTHMOL [Concomitant]
     Indication: CARDIAC VALVE DISEASE
  8. SERETIDE [Concomitant]
     Indication: BRONCHITIS CHRONIC
  9. COLCHICINE [Concomitant]
     Indication: FAMILIAL MEDITERRANEAN FEVER
  10. LANZOR [Concomitant]
     Indication: FAMILIAL MEDITERRANEAN FEVER

REACTIONS (2)
  - DYSURIA [None]
  - PROSTATIC ADENOMA [None]
